FAERS Safety Report 5625736-6 (Version None)
Quarter: 2008Q1

REPORT INFORMATION
  Report Type: 
  Country: None (occurrence: None)
  Receive Date: 20080207
  Receipt Date: 20080207
  Transmission Date: 20080703
  Serious: Yes (Other)
  Sender: FDA-Public Use
  Company Number: None

PATIENT
  Age: 42 Year
  Sex: Female
  Weight: 71.6683 kg

DRUGS (1)
  1. CHANTIX [Suspect]
     Indication: SMOKING CESSATION THERAPY
     Dosage: 0.5MG BID PO 1 DOSE
     Route: 048

REACTIONS (5)
  - CHEST DISCOMFORT [None]
  - DIZZINESS [None]
  - EUPHORIC MOOD [None]
  - PALPITATIONS [None]
  - VISUAL DISTURBANCE [None]
